FAERS Safety Report 22250066 (Version 1)
Quarter: 2023Q2

REPORT INFORMATION
  Report Type: Spontaneous
  Country: US (occurrence: None)
  Receive Date: 20230424
  Receipt Date: 20230424
  Transmission Date: 20230722
  Serious: Yes (Other)
  Sender: FDA-Public Use
  Company Number: None

PATIENT
  Age: 37 Year
  Sex: Female
  Weight: 51.75 kg

DRUGS (1)
  1. IMITREX [Suspect]
     Active Substance: SUMATRIPTAN SUCCINATE
     Indication: Migraine
     Dosage: OTHER QUANTITY : 1 TABLET(S);?FREQUENCY : AS NEEDED;?
     Route: 048
     Dates: start: 20230421

REACTIONS (15)
  - Fatigue [None]
  - Sedation [None]
  - Limb discomfort [None]
  - Chest discomfort [None]
  - Dyspnoea [None]
  - Heart rate increased [None]
  - Chills [None]
  - Hyperhidrosis [None]
  - Dysstasia [None]
  - Sitting disability [None]
  - Syncope [None]
  - Diarrhoea [None]
  - Impaired driving ability [None]
  - Asthenia [None]
  - Loss of personal independence in daily activities [None]

NARRATIVE: CASE EVENT DATE: 20230421
